FAERS Safety Report 23341021 (Version 2)
Quarter: 2023Q4

REPORT INFORMATION
  Report Type: Spontaneous
  Country: JP (occurrence: JP)
  Receive Date: 20231227
  Receipt Date: 20231228
  Transmission Date: 20240110
  Serious: No
  Sender: FDA-Public Use
  Company Number: JP-MSD-M2023-55815

PATIENT
  Age: 38 Year
  Sex: Female

DRUGS (2)
  1. LAGEVRIO [Suspect]
     Active Substance: MOLNUPIRAVIR
     Indication: COVID-19 treatment
     Dosage: 800 MILLIGRAM, BID
     Route: 048
     Dates: start: 20231220
  2. LOXOPROFEN SODIUM DIHYDRATE [Concomitant]
     Active Substance: LOXOPROFEN SODIUM DIHYDRATE
     Indication: Headache
     Dosage: 60 MILLIGRAM, TID
     Route: 048
     Dates: start: 20231220

REACTIONS (1)
  - Headache [Unknown]

NARRATIVE: CASE EVENT DATE: 20231220
